FAERS Safety Report 5599956-3 (Version None)
Quarter: 2008Q1

REPORT INFORMATION
  Report Type: 
  Country: None (occurrence: None)
  Receive Date: 20080123
  Receipt Date: 20080118
  Transmission Date: 20080703
  Serious: Yes (Hospitalization)
  Sender: FDA-Public Use
  Company Number: JP-NOVOPROD-255952

PATIENT
  Sex: Male
  Weight: 14.8 kg

DRUGS (1)
  1. NORDITROPIN [Suspect]
     Indication: SMALL FOR DATES BABY
     Dosage: UNK, UNK
     Route: 058
     Dates: start: 20050929

REACTIONS (1)
  - IGA NEPHROPATHY [None]
